FAERS Safety Report 8317829-X (Version None)
Quarter: 2012Q2

REPORT INFORMATION
  Report Type: 
  Country: None (occurrence: None)
  Receive Date: 20120427
  Receipt Date: 20120427
  Transmission Date: 20120825
  Serious: Yes (Hospitalization, Disabling)
  Sender: FDA-Public Use
  Company Number: JP-JNJFOC-20120308027

PATIENT
  Sex: Female
  Weight: 53 kg

DRUGS (5)
  1. CLARITHROMYCIN [Interacting]
     Indication: RALES
     Route: 048
     Dates: start: 20111206, end: 20111209
  2. FENTANYL-100 [Suspect]
     Indication: PAIN
     Route: 062
     Dates: start: 20120316
  3. LEVOFLOXACIN [Concomitant]
     Indication: RHINORRHOEA
     Route: 065
     Dates: start: 20111202, end: 20111205
  4. FENTANYL-100 [Suspect]
     Route: 062
     Dates: start: 20111115, end: 20111209
  5. CLARITHROMYCIN [Interacting]
     Indication: UPPER RESPIRATORY TRACT INFLAMMATION
     Route: 048
     Dates: start: 20111206, end: 20111209

REACTIONS (6)
  - UPPER RESPIRATORY TRACT INFLAMMATION [None]
  - OVERDOSE [None]
  - DRUG INTERACTION [None]
  - STUPOR [None]
  - RESPIRATORY DEPRESSION [None]
  - MIOSIS [None]
